FAERS Safety Report 4714842-6 (Version None)
Quarter: 2005Q3

REPORT INFORMATION
  Report Type: 
  Country: None (occurrence: None)
  Receive Date: 20050715
  Receipt Date: 20050711
  Transmission Date: 20060218
  Serious: Yes (Hospitalization)
  Sender: FDA-Public Use
  Company Number: CA-SOLVAY-00305002227

PATIENT
  Age: 39 Year
  Sex: Female

DRUGS (4)
  1. CLONAZEPAM [Concomitant]
     Indication: ILL-DEFINED DISORDER
     Dosage: DAILY DOSE: 1 MILLIGRAM(S)
     Route: 065
  2. FLUVOXAMINE [Suspect]
     Indication: ILL-DEFINED DISORDER
     Dosage: DAILY DOSE: 50 MILLIGRAM(S)
     Route: 065
  3. FLUVOXAMINE [Suspect]
     Dosage: DAILY DOSE: 150 MILLIGRAM(S)
     Route: 065
  4. FLUVOXAMINE [Suspect]
     Dosage: DAILY DOSE:  UNKNOWN
     Route: 065

REACTIONS (2)
  - HEPATOTOXICITY [None]
  - NEPHROPATHY TOXIC [None]
